FAERS Safety Report 25493370 (Version 2)
Quarter: 2025Q3

REPORT INFORMATION
  Report Type: Spontaneous
  Country: IN (occurrence: IN)
  Receive Date: 20250630
  Receipt Date: 20250705
  Transmission Date: 20251020
  Serious: Yes (Hospitalization, Other)
  Sender: MACLEODS
  Company Number: IN-MACLEODS PHARMA-MAC2025053731

PATIENT

DRUGS (2)
  1. TRAMADOL [Suspect]
     Active Substance: TRAMADOL
     Indication: Pain
     Route: 065
  2. TRAMADOL [Suspect]
     Active Substance: TRAMADOL
     Indication: Pain

REACTIONS (14)
  - Delirium [Recovered/Resolved]
  - Pain [Recovered/Resolved]
  - Confusional state [Recovered/Resolved]
  - Insomnia [Recovered/Resolved]
  - Agitation [Recovered/Resolved]
  - Disorientation [Recovered/Resolved]
  - Patient uncooperative [Recovered/Resolved]
  - Self-medication [Unknown]
  - Intentional overdose [Recovered/Resolved]
  - Drug dependence [Recovered/Resolved]
  - Drug withdrawal syndrome [Recovered/Resolved]
  - Yawning [Recovered/Resolved]
  - Restlessness [Recovered/Resolved]
  - Intentional product misuse [Recovered/Resolved]
